FAERS Safety Report 8963812 (Version 1)
Quarter: 2012Q4

REPORT INFORMATION
  Report Type: 
  Country: US (occurrence: US)
  Receive Date: 20121213
  Receipt Date: 20121213
  Transmission Date: 20130627
  Serious: No
  Sender: FDA-Public Use
  Company Number: US-B.I. PHARMACEUTICALS,INC./RIDGEFIELD-2012-BI-02700BP

PATIENT
  Sex: Male

DRUGS (2)
  1. PRADAXA [Suspect]
     Indication: ANTICOAGULANT THERAPY
     Dosage: 300 mg
     Route: 048
     Dates: start: 2012, end: 20121202
  2. WARFARIN [Concomitant]
     Indication: INTRACARDIAC THROMBUS

REACTIONS (1)
  - International normalised ratio increased [Unknown]
